FAERS Safety Report 5777622-9 (Version None)
Quarter: 2008Q2

REPORT INFORMATION
  Report Type: 
  Country: None (occurrence: None)
  Receive Date: 20080601
  Receipt Date: 20080218
  Transmission Date: 20081010
  Serious: No
  Sender: FDA-Public Use
  Company Number: US200801003626

PATIENT
  Age: 59 Year
  Sex: Male
  Weight: 106.6 kg

DRUGS (8)
  1. BYETTA [Suspect]
     Indication: TYPE 2 DIABETES MELLITUS
     Dosage: 5 UG, 2/D, SUBCUTANEOUS ; 10 UG, 2/D, SUBCUTANEOUS
     Route: 058
     Dates: start: 20060101, end: 20060101
  2. BYETTA [Suspect]
     Indication: TYPE 2 DIABETES MELLITUS
     Dosage: 5 UG, 2/D, SUBCUTANEOUS ; 10 UG, 2/D, SUBCUTANEOUS
     Route: 058
     Dates: start: 20060101
  3. METFORMIN HCL [Concomitant]
  4. LYRICA [Concomitant]
  5. AMLODIPINE [Concomitant]
  6. QUINARETIC (HYDROCHLOROTHIAZIDE, QUINAPRIL HYDROCHLORIDE) [Concomitant]
  7. VYTORIN [Concomitant]
  8. RANITIDINE [Concomitant]

REACTIONS (5)
  - DECREASED APPETITE [None]
  - DRUG INEFFECTIVE [None]
  - NAUSEA [None]
  - NERVE DEGENERATION [None]
  - WEIGHT DECREASED [None]
